FAERS Safety Report 9704190 (Version 2)
Quarter: 2013Q4

REPORT INFORMATION
  Report Type: Spontaneous
  Country: US (occurrence: US)
  Receive Date: 20131122
  Receipt Date: 20131127
  Transmission Date: 20140711
  Serious: Yes (Death, Hospitalization)
  Sender: FDA-Public Use
  Company Number: US-B.I. PHARMACEUTICALS,INC./RIDGEFIELD-2013-BI-38152BP

PATIENT
  Age: 58 Year
  Sex: Male
  Weight: 64 kg

DRUGS (6)
  1. COMBIVENT [Suspect]
     Indication: LUNG NEOPLASM MALIGNANT
     Dosage: STRENGTH: 20 MCG / 100 MCG;
     Route: 055
     Dates: start: 201311
  2. COMBIVENT [Suspect]
     Indication: DYSPNOEA
  3. MULTIPLE CHEMOTHERAPY [Concomitant]
  4. VICODIN [Concomitant]
     Indication: PAIN
  5. ZOFRAN [Concomitant]
     Indication: NAUSEA
  6. PRILOSEC [Concomitant]
     Indication: DYSPEPSIA

REACTIONS (2)
  - Cerebrovascular accident [Fatal]
  - Off label use [Recovered/Resolved]
